FAERS Safety Report 7401973-5 (Version None)
Quarter: 2011Q2

REPORT INFORMATION
  Report Type: 
  Country: None (occurrence: None)
  Receive Date: 20110408
  Receipt Date: 20110401
  Transmission Date: 20111010
  Serious: Yes (Other)
  Sender: FDA-Public Use
  Company Number: US-BAYER-2011-029198

PATIENT
  Age: 45 Year
  Sex: Female

DRUGS (2)
  1. YASMIN [Suspect]
     Dosage: UNK
     Dates: start: 20080626, end: 20090201
  2. YAZ [Suspect]
     Dosage: UNK
     Dates: start: 20080626, end: 20090201

REACTIONS (4)
  - PAIN [None]
  - MYOCARDIAL INFARCTION [None]
  - INJURY [None]
  - EMOTIONAL DISTRESS [None]
